FAERS Safety Report 10851274 (Version 1)
Quarter: 2015Q1

REPORT INFORMATION
  Report Type: Spontaneous
  Country: US (occurrence: US)
  Receive Date: 20150222
  Receipt Date: 20150222
  Transmission Date: 20150721
  Serious: No
  Sender: FDA-Public Use
  Company Number: US-ALLERGAN-1408022US

PATIENT
  Age: 75 Year
  Sex: Male

DRUGS (10)
  1. BOTOX [Suspect]
     Active Substance: ONABOTULINUMTOXINA
     Indication: MIGRAINE
     Dosage: 200 UNITS, SINGLE
     Route: 030
     Dates: start: 20140331, end: 20140331
  2. PERCOCET                           /00446701/ [Concomitant]
     Active Substance: ACETAMINOPHEN\OXYCODONE HYDROCHLORIDE\OXYCODONE TEREPHTHALATE
  3. AMBIEN [Concomitant]
     Active Substance: ZOLPIDEM TARTRATE
  4. VITAMIN D3 [Concomitant]
     Active Substance: CHOLECALCIFEROL
  5. VICODIN [Concomitant]
     Active Substance: ACETAMINOPHEN\HYDROCODONE BITARTRATE
  6. PROVIGIL [Concomitant]
     Active Substance: MODAFINIL
  7. XARELTO [Concomitant]
     Active Substance: RIVAROXABAN
  8. PROLIA [Concomitant]
     Active Substance: DENOSUMAB
  9. ZIOPTAN [Concomitant]
     Active Substance: TAFLUPROST
  10. FROVA [Concomitant]
     Active Substance: FROVATRIPTAN SUCCINATE

REACTIONS (4)
  - Dry eye [Not Recovered/Not Resolved]
  - Off label use [Unknown]
  - Neck pain [Unknown]
  - Vision blurred [Not Recovered/Not Resolved]
